FAERS Safety Report 8540424-4 (Version None)
Quarter: 2012Q3

REPORT INFORMATION
  Report Type: 
  Country: None (occurrence: None)
  Receive Date: 20120726
  Receipt Date: 20110609
  Transmission Date: 20120928
  Serious: No
  Sender: FDA-Public Use
  Company Number: US-ASTRAZENECA-2011SE35863

PATIENT
  Age: 73 Year
  Sex: Female

DRUGS (2)
  1. SEROQUEL [Suspect]
     Indication: INSOMNIA
     Route: 048
  2. ZYPREXA [Concomitant]

REACTIONS (3)
  - HEADACHE [None]
  - INSOMNIA [None]
  - OFF LABEL USE [None]
